FAERS Safety Report 16635375 (Version 1)
Quarter: 2019Q3

REPORT INFORMATION
  Report Type: Spontaneous
  Country: JP (occurrence: JP)
  Receive Date: 20190726
  Receipt Date: 20190726
  Transmission Date: 20191004
  Serious: Yes (Other)
  Sender: FDA-Public Use
  Company Number: JP-MICRO LABS LIMITED-ML2019-01739

PATIENT
  Age: 58 Year
  Sex: Male

DRUGS (7)
  1. MINOCYCLINE [Suspect]
     Active Substance: MINOCYCLINE HYDROCHLORIDE
     Dosage: 100 MG/DAY, ORALLY FOR TWO WEEKS
     Route: 048
  2. INSULIN LISPRO [Suspect]
     Active Substance: INSULIN LISPRO
     Indication: TYPE 2 DIABETES MELLITUS
     Dosage: 52 U/DAY FOR 15 YEARS
     Route: 058
  3. MINOCYCLINE [Suspect]
     Active Substance: MINOCYCLINE HYDROCHLORIDE
     Indication: STAPHYLOCOCCAL SEPSIS
     Dosage: 100 MG/DAY, INTRAVENOUSLY FOR ONE WEEK
     Route: 042
  4. INSULIN GLARGINE [Suspect]
     Active Substance: INSULIN GLARGINE
     Indication: TYPE 2 DIABETES MELLITUS
     Dosage: 52 U/DAY FOR 15 YEARS
     Route: 058
  5. CLINDAMYCIN. [Suspect]
     Active Substance: CLINDAMYCIN
     Indication: STAPHYLOCOCCAL SEPSIS
     Dosage: 1800 MG/DAY, INTRAVENOUSLY FOR ONE WEEK
     Route: 042
  6. CEFTRIAXONE. [Suspect]
     Active Substance: CEFTRIAXONE
     Indication: STAPHYLOCOCCAL SEPSIS
     Dosage: 1 G/DAY INTRAVENOUSLY FOR 11 DAYS
     Route: 042
  7. VANCOMYCIN [Suspect]
     Active Substance: VANCOMYCIN
     Indication: STAPHYLOCOCCAL SEPSIS
     Dosage: 1 G/DAY INTRAVENOUSLY FOR ONE WEEK
     Route: 042

REACTIONS (3)
  - Renal impairment [Unknown]
  - Amyloidosis [Recovered/Resolved]
  - Fat necrosis [Recovered/Resolved]
